FAERS Safety Report 8607332 (Version 3)
Quarter: 2014Q1

REPORT INFORMATION
  Report Type: Spontaneous
  Country: US (occurrence: US)
  Receive Date: 20120611
  Receipt Date: 20140108
  Transmission Date: 20141002
  Serious: Yes (Disabling)
  Sender: FDA-Public Use
  Company Number: US-ASTRAZENECA-2012SE34784

PATIENT
  Age: 44 Year
  Sex: Female
  Weight: 111.6 kg

DRUGS (28)
  1. NEXIUM [Suspect]
     Indication: GASTROOESOPHAGEAL REFLUX DISEASE
     Route: 048
     Dates: start: 2000, end: 2010
  2. NEXIUM [Suspect]
     Indication: GASTROOESOPHAGEAL REFLUX DISEASE
     Route: 048
     Dates: start: 20061004
  3. PRILOSEC [Suspect]
     Route: 048
  4. PROTONIX [Concomitant]
  5. ZANTAC [Concomitant]
  6. HYDROCODONE [Concomitant]
     Indication: PAIN
  7. VERAPAMIL [Concomitant]
     Indication: HYPERTENSION
  8. VERAPAMIL [Concomitant]
     Indication: HYPERTENSION
     Route: 048
  9. VERAPAMIL [Concomitant]
     Indication: HYPERTENSION
     Dates: start: 20060813
  10. FLEXERIL [Concomitant]
     Indication: MUSCLE SPASMS
  11. NEURONTIN [Concomitant]
     Indication: NEURALGIA
  12. XANAX [Concomitant]
     Indication: ANXIETY
  13. ANTIVERT [Concomitant]
     Indication: DIZZINESS
     Dosage: 25 MG THREE TIMES A DAY, PRN
  14. ANTIVERT [Concomitant]
     Indication: VERTIGO
     Dosage: 25 MG THREE TIMES A DAY, PRN
  15. ASPIRIN [Concomitant]
     Indication: ARTHRALGIA
  16. BUPROPION SR [Concomitant]
  17. CETRIZINE HCL [Concomitant]
  18. FLUTICASONE [Concomitant]
  19. FUROSEMIDE [Concomitant]
     Dosage: 40 MG THREE TIMES A DAY, PRN
     Route: 048
  20. FUROSEMIDE [Concomitant]
     Dates: start: 20070223
  21. HYDROCHLOROTHIAZIDE [Concomitant]
     Route: 048
  22. HYDROCHLOROTHIAZIDE [Concomitant]
     Dates: start: 20060802
  23. TOPAMAX [Concomitant]
  24. TIZANIDINE HCL [Concomitant]
  25. ZOCOR [Concomitant]
  26. POTASSIUM CHLORIDE [Concomitant]
     Dates: start: 20060803
  27. LORAZEPAM [Concomitant]
     Dates: start: 20060813
  28. SERTRALINE HCL [Concomitant]
     Dates: start: 20061003

REACTIONS (11)
  - Back disorder [Unknown]
  - Osteoporosis [Unknown]
  - Bone density decreased [Unknown]
  - Multiple fractures [Unknown]
  - Hand fracture [Unknown]
  - Back pain [Unknown]
  - Wrist fracture [Unknown]
  - Tenosynovitis stenosans [Unknown]
  - Fall [Unknown]
  - Vitamin D deficiency [Unknown]
  - Depression [Unknown]
